FAERS Safety Report 6083765-5 (Version None)
Quarter: 2009Q1

REPORT INFORMATION
  Report Type: 
  Country: None (occurrence: None)
  Receive Date: 20090219
  Receipt Date: 20080610
  Transmission Date: 20090719
  Serious: No
  Sender: FDA-Public Use
  Company Number: US-ASTRAZENECA-2008UW11652

PATIENT
  Sex: Female

DRUGS (6)
  1. ACCOLATE [Suspect]
     Indication: BRONCHIOLITIS
     Route: 048
  2. ACCOLATE [Suspect]
     Indication: ASTHMA
     Route: 048
  3. ACIPHEX [Concomitant]
  4. ATROVENT [Concomitant]
  5. FLOVENT [Concomitant]
  6. XOPENEX [Concomitant]

REACTIONS (1)
  - LACTOSE INTOLERANCE [None]
